FAERS Safety Report 25905519 (Version 2)
Quarter: 2025Q4

REPORT INFORMATION
  Report Type: Report from Study
  Country: US (occurrence: US)
  Receive Date: 20251010
  Receipt Date: 20251014
  Transmission Date: 20260117
  Serious: Yes (Death)
  Sender: ROCHE
  Company Number: US-ROCHE-10000407191

PATIENT
  Age: 72 Year
  Sex: Female

DRUGS (2)
  1. AVASTIN [Suspect]
     Active Substance: BEVACIZUMAB
     Indication: Colon cancer
     Dosage: MORE DOSAGE TEXT: INFUSE 500MG INTRAVENOUSLY EVERY 2 WEEKS
     Route: 042
  2. AVASTIN [Suspect]
     Active Substance: BEVACIZUMAB
     Dosage: MORE DOSAGE TEXT: INFUSE 500MG INTRAVENOUSLY EVERY 2 WEEKS
     Route: 042

REACTIONS (1)
  - Death [Fatal]
